FAERS Safety Report 8408766-0 (Version None)
Quarter: 2012Q2

REPORT INFORMATION
  Report Type: 
  Country: None (occurrence: None)
  Receive Date: 20120604
  Receipt Date: 20120522
  Transmission Date: 20120825
  Serious: Yes (Other)
  Sender: FDA-Public Use
  Company Number: DE-ELI_LILLY_AND_COMPANY-DE201205008048

PATIENT
  Age: 51 Year
  Sex: Female

DRUGS (3)
  1. OLANZAPINE [Suspect]
     Dosage: 30 MG, QD
  2. LORAZEPAM [Concomitant]
  3. LEVOTHYROXINE SODIUM [Concomitant]

REACTIONS (2)
  - HYPOTHERMIA [None]
  - OVERDOSE [None]
